FAERS Safety Report 7096426-0 (Version None)
Quarter: 2010Q4

REPORT INFORMATION
  Report Type: 
  Country: None (occurrence: None)
  Receive Date: 20101101
  Receipt Date: 20101008
  Transmission Date: 20110411
  Serious: Yes (Other)
  Sender: FDA-Public Use
  Company Number: 021160

PATIENT

DRUGS (1)
  1. NEUPRO [Suspect]

REACTIONS (1)
  - MALIGNANT MELANOMA [None]
